FAERS Safety Report 4590977-6 (Version None)
Quarter: 2005Q1

REPORT INFORMATION
  Report Type: 
  Country: None (occurrence: None)
  Receive Date: 20050222
  Receipt Date: 20050222
  Transmission Date: 20050727
  Serious: Yes (Other)
  Sender: FDA-Public Use
  Company Number: None

PATIENT
  Sex: Female
  Weight: 84.8226 kg

DRUGS (1)
  1. LEVOTHROXINE 75 MCG [Suspect]
     Indication: HYPOTHYROIDISM
     Dosage: 75 MCG PO QD
     Route: 048
     Dates: start: 19990201

REACTIONS (1)
  - NO ADVERSE EFFECT [None]
